FAERS Safety Report 4600588-1 (Version None)
Quarter: 2005Q1

REPORT INFORMATION
  Report Type: 
  Country: None (occurrence: None)
  Receive Date: 20050304
  Receipt Date: 20050228
  Transmission Date: 20050727
  Serious: Yes (Death, Hospitalization)
  Sender: FDA-Public Use
  Company Number: 2005-BP-03079EX

PATIENT
  Age: 74 Year
  Sex: Male

DRUGS (4)
  1. LEUCOVORIN CALCIUM [Suspect]
     Indication: RECTAL CANCER
     Dosage: 75 MG/DAY/CYCLE, PO
     Route: 048
     Dates: start: 20040513, end: 20041001
  2. UFT [Suspect]
     Indication: RECTAL CANCER
     Dosage: 5 CAPSULES/DAY/CYCLE, PO
     Route: 048
     Dates: start: 20040513, end: 20041001
  3. FAMOTIDINE [Concomitant]
  4. LAC-B (BIFIDOBACTERIUM BIFIDUM) (LACTOBACILLUS BIFIDUS, LYOPHILIZED) [Concomitant]

REACTIONS (11)
  - ALANINE AMINOTRANSFERASE INCREASED [None]
  - ANOREXIA [None]
  - BLOOD ALKALINE PHOSPHATASE INCREASED [None]
  - DIARRHOEA [None]
  - DYSGEUSIA [None]
  - GAMMA-GLUTAMYLTRANSFERASE INCREASED [None]
  - JAUNDICE [None]
  - MALIGNANT NEOPLASM PROGRESSION [None]
  - METASTASES TO LIVER [None]
  - PIGMENTATION DISORDER [None]
  - STOMATITIS [None]
